FAERS Safety Report 22161159 (Version 1)
Quarter: 2023Q1

REPORT INFORMATION
  Report Type: Spontaneous
  Country: US (occurrence: US)
  Receive Date: 20230331
  Receipt Date: 20230331
  Transmission Date: 20230417
  Serious: No
  Sender: FDA-Public Use
  Company Number: US-drreddys-SPO/USA/23/0160761

PATIENT
  Age: 49 Year
  Sex: Female

DRUGS (4)
  1. LEVOFLOXACIN [Suspect]
     Active Substance: LEVOFLOXACIN
     Indication: Product used for unknown indication
     Dates: start: 20221214, end: 20221228
  2. VITAMINS [Concomitant]
     Active Substance: VITAMINS
     Indication: Product used for unknown indication
  3. HYDROCODONE [Concomitant]
     Active Substance: HYDROCODONE
     Indication: Product used for unknown indication
  4. TAMIDOL [Concomitant]
     Indication: Product used for unknown indication

REACTIONS (11)
  - Joint stiffness [Unknown]
  - Hyperhidrosis [Unknown]
  - Disturbance in attention [Unknown]
  - Impaired quality of life [Unknown]
  - Anxiety [Unknown]
  - Insomnia [Unknown]
  - Dyspnoea [Unknown]
  - Tendon rupture [Unknown]
  - Arthralgia [Unknown]
  - Chest pain [Unknown]
  - Pain [Unknown]

NARRATIVE: CASE EVENT DATE: 20221228
